FAERS Safety Report 17487447 (Version 1)
Quarter: 2020Q1

REPORT INFORMATION
  Report Type: Spontaneous
  Country: US (occurrence: US)
  Receive Date: 20200303
  Receipt Date: 20200303
  Transmission Date: 20200409
  Serious: No
  Sender: FDA-Public Use
  Company Number: US-IPSEN BIOPHARMACEUTICALS, INC.-2020-03741

PATIENT
  Sex: Female

DRUGS (6)
  1. DYSPORT [Suspect]
     Active Substance: ABOBOTULINUMTOXINA
     Indication: NECK PAIN
     Dosage: DOSE NOT REPORTED
     Route: 065
  2. ETODOLAC. [Concomitant]
     Active Substance: ETODOLAC
  3. HYDROCODONE [Concomitant]
     Active Substance: HYDROCODONE
     Dosage: 5 TABLETS- 325 MG
  4. PROMETHAZINE [Concomitant]
     Active Substance: PROMETHAZINE HYDROCHLORIDE
  5. DYSPORT [Suspect]
     Active Substance: ABOBOTULINUMTOXINA
     Indication: OFF LABEL USE
  6. RIZATRIPTAN BENZOATE. [Concomitant]
     Active Substance: RIZATRIPTAN BENZOATE

REACTIONS (5)
  - Product dose omission [Unknown]
  - Back injury [Unknown]
  - Off label use [Unknown]
  - Migraine [Unknown]
  - Headache [Unknown]
